FAERS Safety Report 6963094-5 (Version None)
Quarter: 2010Q3

REPORT INFORMATION
  Report Type: 
  Country: None (occurrence: None)
  Receive Date: 20100823
  Receipt Date: 20100616
  Transmission Date: 20110219
  Serious: No
  Sender: FDA-Public Use
  Company Number: 012293

PATIENT
  Sex: Female
  Weight: 53.5 kg

DRUGS (8)
  1. CIMZIA [Suspect]
     Indication: CROHN'S DISEASE
     Dosage: (400 MG 1X/MONTH SUBCUTANEOUS)
     Route: 058
     Dates: start: 20090901
  2. PREVACID [Concomitant]
  3. ASACOL [Concomitant]
  4. IMURAN [Concomitant]
  5. VITAMIN B12 NOS [Concomitant]
  6. ASCORBIC ACID [Concomitant]
  7. VITAMIN D3 [Concomitant]
  8. POTASSIUM CHLORIDE [Concomitant]

REACTIONS (2)
  - ARTHRALGIA [None]
  - RECTAL HAEMORRHAGE [None]
